FAERS Safety Report 6134362-4 (Version None)
Quarter: 2009Q1

REPORT INFORMATION
  Report Type: 
  Country: None (occurrence: None)
  Receive Date: 20090327
  Receipt Date: 20090320
  Transmission Date: 20090719
  Serious: Yes (Hospitalization)
  Sender: FDA-Public Use
  Company Number: CA-ASTRAZENECA-2009UW06874

PATIENT
  Age: 60 Year
  Sex: Male
  Weight: 155 kg

DRUGS (1)
  1. ATACAND [Suspect]
     Indication: LEFT VENTRICULAR DYSFUNCTION
     Route: 048
     Dates: start: 20090203, end: 20090311

REACTIONS (1)
  - CARDIAC FAILURE [None]
